FAERS Safety Report 14646295 (Version 2)
Quarter: 2018Q1

REPORT INFORMATION
  Report Type: Spontaneous
  Country: IT (occurrence: IT)
  Receive Date: 20180316
  Receipt Date: 20180327
  Transmission Date: 20180509
  Serious: Yes (Hospitalization, Congenital Anomaly, Other)
  Sender: FDA-Public Use
  Company Number: IT-MERCK KGAA-2043879

PATIENT
  Age: 61 Year
  Sex: Female

DRUGS (9)
  1. TALOFEN [Suspect]
     Active Substance: PROMAZINE HYDROCHLORIDE
     Route: 048
     Dates: start: 20170629, end: 20170629
  2. NOVOTHYROX [Suspect]
     Active Substance: LEVOTHYROXINE SODIUM
     Indication: PRODUCT USED FOR UNKNOWN INDICATION
     Route: 048
     Dates: start: 20170629, end: 20170629
  3. LORAZEPAM. [Suspect]
     Active Substance: LORAZEPAM
     Route: 048
  4. LORAZEPAM. [Suspect]
     Active Substance: LORAZEPAM
     Route: 048
     Dates: start: 20170629, end: 20170629
  5. TAVOR (LORAZEPAM) [Concomitant]
     Active Substance: LORAZEPAM
  6. LORAZEPAM. [Suspect]
     Active Substance: LORAZEPAM
  7. ALCOHOL. [Suspect]
     Active Substance: ALCOHOL
     Dates: start: 20170629, end: 20170629
  8. VENLAFAXINE [Suspect]
     Active Substance: VENLAFAXINE HYDROCHLORIDE
     Route: 048
     Dates: start: 20170629, end: 20170629
  9. TALOFEN [Suspect]
     Active Substance: PROMAZINE HYDROCHLORIDE
     Route: 048

REACTIONS (4)
  - Intentional self-injury [Recovered/Resolved]
  - Drug use disorder [Recovered/Resolved]
  - Alcohol interaction [Recovered/Resolved]
  - Slow speech [Recovered/Resolved]

NARRATIVE: CASE EVENT DATE: 20170630
